FAERS Safety Report 12331383 (Version 1)
Quarter: 2016Q2

REPORT INFORMATION
  Report Type: Spontaneous
  Country: US (occurrence: US)
  Receive Date: 20160504
  Receipt Date: 20160504
  Transmission Date: 20160815
  Serious: No
  Sender: FDA-Public Use
  Company Number: US-VERTEX PHARMACEUTICALS-2016-002873

PATIENT
  Age: 6 Year
  Sex: Female

DRUGS (1)
  1. KALYDECO [Suspect]
     Active Substance: IVACAFTOR
     Indication: CYSTIC FIBROSIS
     Dosage: 75 MG, UNK
     Route: 048

REACTIONS (5)
  - Fatigue [Unknown]
  - Ear infection [Unknown]
  - Abnormal faeces [Unknown]
  - Upper respiratory tract infection [Unknown]
  - Decreased appetite [Unknown]
